FAERS Safety Report 5356972-4 (Version None)
Quarter: 2007Q2

REPORT INFORMATION
  Report Type: 
  Country: None (occurrence: None)
  Receive Date: 20070530
  Receipt Date: 20070118
  Transmission Date: 20071010
  Serious: Yes (Other)
  Sender: FDA-Public Use
  Company Number: US200607003878

PATIENT
  Age: 24 Year
  Sex: Female
  Weight: 75.7 kg

DRUGS (6)
  1. ZYPREXA [Suspect]
     Indication: ANXIETY
     Dosage: SEE IMAGE
     Dates: start: 20030911, end: 20031117
  2. ZYPREXA [Suspect]
     Indication: ANXIETY
     Dosage: SEE IMAGE
     Dates: start: 20030331
  3. FLUOXETINE [Concomitant]
  4. SERTRALINE [Concomitant]
  5. VENLAFAXINE HCL [Concomitant]
  6. ESTROGENS CONJUGATED W/PROGESTERONE (ESTROGENS CONJUGATED, PROGESTERON [Concomitant]

REACTIONS (6)
  - DIABETES MELLITUS [None]
  - DIABETIC KETOACIDOSIS [None]
  - GLUCOSE TOLERANCE IMPAIRED [None]
  - OBESITY [None]
  - PANCREATITIS [None]
  - VISION BLURRED [None]
